FAERS Safety Report 16476622 (Version 1)
Quarter: 2019Q2

REPORT INFORMATION
  Report Type: Report from Study
  Country: FR (occurrence: FR)
  Receive Date: 20190626
  Receipt Date: 20190626
  Transmission Date: 20190711
  Serious: Yes (Hospitalization, Other)
  Sender: FDA-Public Use
  Company Number: FR-BRISTOL-MYERS SQUIBB COMPANY-BMS-2019-059894

PATIENT
  Age: 72 Year
  Sex: Male

DRUGS (3)
  1. IPILIMUMAB [Suspect]
     Active Substance: IPILIMUMAB
     Indication: MALIGNANT MELANOMA
     Dosage: 261 MILLIGRAM
     Route: 042
     Dates: start: 20190405, end: 20190426
  2. IMO-2125 [Suspect]
     Active Substance: TILSOTOLIMOD SODIUM
     Indication: MALIGNANT MELANOMA
     Dosage: 8 MILLIGRAM
     Route: 065
     Dates: start: 20190327, end: 20190607
  3. LEVOTHYROX [Concomitant]
     Active Substance: LEVOTHYROXINE
     Indication: PRODUCT USED FOR UNKNOWN INDICATION
     Dosage: 8 MILLIGRAM
     Route: 048
     Dates: start: 201903

REACTIONS (1)
  - Anaphylactic reaction [Not Recovered/Not Resolved]

NARRATIVE: CASE EVENT DATE: 20190607
